FAERS Safety Report 9783410 (Version 2)
Quarter: 2014Q2

REPORT INFORMATION
  Report Type: Spontaneous
  Country: IT (occurrence: IT)
  Receive Date: 20131226
  Receipt Date: 20140407
  Transmission Date: 20141212
  Serious: Yes (Hospitalization)
  Sender: FDA-Public Use
  Company Number: IT-BRISTOL-MYERS SQUIBB COMPANY-19921105

PATIENT
  Age: 79 Year
  Sex: Female

DRUGS (6)
  1. COUMADIN TABS 5 MG [Suspect]
     Indication: PROPHYLAXIS
     Route: 048
     Dates: start: 20070521, end: 20131028
  2. BISOPROLOL HEMIFUMARATE [Concomitant]
     Dosage: TABS
     Route: 048
  3. LASIX [Concomitant]
     Dosage: TABS
     Route: 048
  4. LUVION [Concomitant]
     Dosage: TABS
     Route: 048
  5. EPINITRIL [Concomitant]
     Dosage: TRANSDERMAL PATCHES
  6. AMARYL [Concomitant]
     Indication: DIABETES MELLITUS
     Dosage: TABS
     Route: 048

REACTIONS (2)
  - Erythema [Not Recovered/Not Resolved]
  - Joint swelling [Not Recovered/Not Resolved]
